FAERS Safety Report 9071670 (Version 1)
Quarter: 2013Q1

REPORT INFORMATION
  Report Type: Spontaneous
  Country: JP (occurrence: JP)
  Receive Date: 20130129
  Receipt Date: 20130129
  Transmission Date: 20140127
  Serious: Yes (Other)
  Sender: FDA-Public Use
  Company Number: JP-TEVA-382083ISR

PATIENT
  Sex: 0

DRUGS (4)
  1. CLARITHROMYCIN [Suspect]
  2. SEROQUEL [Concomitant]
     Route: 048
  3. HALCION [Concomitant]
     Route: 048
  4. DEPAS [Concomitant]
     Route: 048

REACTIONS (1)
  - Dementia [Recovered/Resolved]
